FAERS Safety Report 24892970 (Version 2)
Quarter: 2025Q1

REPORT INFORMATION
  Report Type: Spontaneous
  Country: US (occurrence: US)
  Receive Date: 20250128
  Receipt Date: 20250130
  Transmission Date: 20250409
  Serious: No
  Sender: Haleon PLC
  Company Number: US-HALEON-2225311

PATIENT

DRUGS (1)
  1. CALTRATE WITH VITAMIN D [Suspect]
     Active Substance: CALCIUM CARBONATE\CHOLECALCIFEROL
     Indication: Mineral supplementation

REACTIONS (2)
  - Diarrhoea [Recovering/Resolving]
  - Vomiting [Recovering/Resolving]
